FAERS Safety Report 7674906-4 (Version None)
Quarter: 2011Q3

REPORT INFORMATION
  Report Type: 
  Country: None (occurrence: None)
  Receive Date: 20110810
  Receipt Date: 20110727
  Transmission Date: 20111222
  Serious: Yes (Other)
  Sender: FDA-Public Use
  Company Number: US-ELI_LILLY_AND_COMPANY-US201106006751

PATIENT
  Sex: Female
  Weight: 63.492 kg

DRUGS (8)
  1. CYMBALTA [Suspect]
     Indication: MAJOR DEPRESSION
     Dosage: 60 MG, QD
     Route: 048
     Dates: end: 20110601
  2. OXYCODONE HCL [Concomitant]
     Indication: PAIN
  3. OPIOIDS [Concomitant]
  4. LAMICTAL [Concomitant]
     Dosage: 450 MG, QD
  5. KLONOPIN [Concomitant]
     Dosage: UNK, PRN
  6. CYMBALTA [Suspect]
     Dosage: 90 MG, QD
     Route: 048
     Dates: start: 20110601
  7. MORPHINE [Concomitant]
     Indication: PAIN
  8. SIMVASTATIN [Concomitant]

REACTIONS (4)
  - DIZZINESS [None]
  - MUSCLE TWITCHING [None]
  - RASH VESICULAR [None]
  - PURPURA [None]
